FAERS Safety Report 5883870-X (Version None)
Quarter: 2008Q3

REPORT INFORMATION
  Report Type: 
  Country: None (occurrence: None)
  Receive Date: 20080915
  Receipt Date: 20080904
  Transmission Date: 20090109
  Serious: Yes (Death, Hospitalization)
  Sender: FDA-Public Use
  Company Number: A0747377A

PATIENT
  Age: 58 Year
  Sex: Male
  Weight: 69.5 kg

DRUGS (1)
  1. AVANDIA [Suspect]
     Dosage: 4MG PER DAY
     Dates: start: 20030801

REACTIONS (3)
  - CARDIAC FAILURE [None]
  - DEATH [None]
  - MYOCARDIAL INFARCTION [None]
